FAERS Safety Report 12815253 (Version 2)
Quarter: 2016Q4

REPORT INFORMATION
  Report Type: Spontaneous
  Country: FR (occurrence: FR)
  Receive Date: 20161005
  Receipt Date: 20161214
  Transmission Date: 20170207
  Serious: Yes (Hospitalization, Other)
  Sender: FDA-Public Use
  Company Number: FR-PFIZER INC-2016460403

PATIENT
  Age: 35 Year
  Sex: Female

DRUGS (12)
  1. BIPROFENID [Suspect]
     Active Substance: KETOPROFEN
     Indication: ANKYLOSING SPONDYLITIS
     Dosage: UNK
     Route: 048
     Dates: start: 201302, end: 201608
  2. AMLODIPIN /00972401/ [Concomitant]
     Active Substance: AMLODIPINE BESYLATE
     Dosage: UNK
     Dates: start: 20160615
  3. NEFOPAM [Concomitant]
     Active Substance: NEFOPAM
     Dosage: UNK
     Dates: start: 201605, end: 201605
  4. INIPOMP [Suspect]
     Active Substance: PANTOPRAZOLE SODIUM
     Indication: PROPHYLAXIS AGAINST GASTROINTESTINAL ULCER
     Dosage: 40 MG, QD
     Route: 048
     Dates: start: 201302, end: 201606
  5. SALAZOPYRINE [Suspect]
     Active Substance: SULFASALAZINE
     Indication: ANKYLOSING SPONDYLITIS
     Dosage: 2 DF, 3X/DAY
     Route: 048
     Dates: start: 201302
  6. NEFOPAM [Concomitant]
     Active Substance: NEFOPAM
     Dosage: UNK, DAILY
     Dates: start: 20160831
  7. LANSOPRAZOLE. [Suspect]
     Active Substance: LANSOPRAZOLE
     Indication: PROPHYLAXIS AGAINST GASTROINTESTINAL ULCER
     Dosage: UNK
     Route: 048
     Dates: start: 201607
  8. LUDEAL [Concomitant]
     Active Substance: ETHINYL ESTRADIOL\LEVONORGESTREL
     Dosage: UNK
     Dates: end: 201608
  9. TRAMADOL. [Concomitant]
     Active Substance: TRAMADOL
     Dosage: UNK
     Dates: start: 201606
  10. CIMZIA [Suspect]
     Active Substance: CERTOLIZUMAB PEGOL
     Indication: ANKYLOSING SPONDYLITIS
     Dosage: 1 INJECTION PER WEEK
     Route: 058
     Dates: start: 201510, end: 201609
  11. NEFOPAM [Concomitant]
     Active Substance: NEFOPAM
     Dosage: UNK
     Dates: start: 201603, end: 201603
  12. UVEDOSE [Concomitant]
     Active Substance: CHOLECALCIFEROL

REACTIONS (2)
  - Renal failure [Not Recovered/Not Resolved]
  - Tubulointerstitial nephritis [Not Recovered/Not Resolved]

NARRATIVE: CASE EVENT DATE: 2016
